FAERS Safety Report 9792942 (Version 2)
Quarter: 2014Q1

REPORT INFORMATION
  Report Type: Report from Study
  Country: JP (occurrence: JP)
  Receive Date: 20140102
  Receipt Date: 20140213
  Transmission Date: 20141002
  Serious: Yes (Hospitalization)
  Sender: FDA-Public Use
  Company Number: JP-UCBSA-107410

PATIENT
  Age: 64 Year
  Sex: Male
  Weight: 64 kg

DRUGS (10)
  1. CIMZIA [Suspect]
     Indication: RHEUMATOID ARTHRITIS
     Dosage: 200 MG SYRINGE
     Route: 058
     Dates: start: 20130515, end: 20130612
  2. RHEUMATREX [Suspect]
     Indication: RHEUMATOID ARTHRITIS
     Dosage: DAILY DOSE: 10MG/WEEK
     Route: 048
     Dates: end: 20130701
  3. HYPEN [Concomitant]
     Dosage: DAILY DOSE: 400 MG
     Route: 048
  4. MEDROL [Concomitant]
     Dosage: DAILY DOSE: 4 MG
     Route: 048
  5. FOLIAMIN [Concomitant]
     Dosage: DAILY DOSE: 5MG/WEEK
     Route: 048
  6. NEXIUM [Concomitant]
     Dosage: DAILY DOSE: 20 MG
     Route: 048
  7. GASTROM [Concomitant]
     Dosage: DAILY DOSE: 3 G
     Route: 048
  8. RECALBON [Concomitant]
     Dosage: DAILY DOSE: 50 MG/MONTH
     Route: 048
  9. MUCOSOLVAN [Concomitant]
     Dosage: DAILY DOSE: 45 MG
     Route: 048
  10. ISCOTIN [Concomitant]
     Dosage: DAILY DOSE: 0.3 G
     Route: 048

REACTIONS (1)
  - Pneumonia bacterial [Recovered/Resolved]
